FAERS Safety Report 16265280 (Version 1)
Quarter: 2019Q2

REPORT INFORMATION
  Report Type: Spontaneous
  Country: US (occurrence: US)
  Receive Date: 20190501
  Receipt Date: 20190501
  Transmission Date: 20190711
  Serious: Yes (Hospitalization)
  Sender: FDA-Public Use
  Company Number: None

PATIENT
  Age: 46 Year
  Sex: Female

DRUGS (7)
  1. LISNOPRIL [Concomitant]
     Dates: start: 20180807
  2. NORETHINDRON [Concomitant]
     Dates: start: 20180509
  3. SPRYCEL [Suspect]
     Active Substance: DASATINIB
     Indication: ACUTE LYMPHOCYTIC LEUKAEMIA
     Route: 048
     Dates: start: 20180906
  4. NORTRIPTYLIN [Concomitant]
     Active Substance: NORTRIPTYLINE
     Dates: start: 20181227
  5. METOPROL SUC [Concomitant]
     Dates: start: 20181109
  6. ARMOUR THYRO [Concomitant]
     Dates: start: 20181001
  7. SERTRALINE [Concomitant]
     Active Substance: SERTRALINE HYDROCHLORIDE
     Dates: start: 20181220

REACTIONS (1)
  - Stem cell transplant [None]
